FAERS Safety Report 18397890 (Version 1)
Quarter: 2020Q4

REPORT INFORMATION
  Report Type: Spontaneous
  Country: JP (occurrence: JP)
  Receive Date: 20201019
  Receipt Date: 20201019
  Transmission Date: 20210114
  Serious: Yes (Death, Other)
  Sender: FDA-Public Use
  Company Number: JP-GLAXOSMITHKLINE-JP2020JPN206034

PATIENT
  Age: 83 Year
  Sex: Female
  Weight: 49 kg

DRUGS (12)
  1. NEORAL [Concomitant]
     Active Substance: CYCLOSPORINE
     Dosage: UNK
  2. QUETIAPINE. [Concomitant]
     Active Substance: QUETIAPINE
     Dosage: UNK
  3. ROZEREM TABLETS [Concomitant]
     Dosage: UNK
  4. GENTAMICIN SULFATE OINTMENT [Concomitant]
     Dosage: UNK
  5. SAMTIREL [Concomitant]
     Active Substance: ATOVAQUONE
     Dosage: UNK
     Route: 048
  6. AMLODIPINE BESILATE TABLET [Concomitant]
     Active Substance: AMLODIPINE BESYLATE
     Dosage: UNK
  7. XYZAL [Concomitant]
     Active Substance: LEVOCETIRIZINE DIHYDROCHLORIDE
     Dosage: UNK
     Route: 048
  8. PREDONINE [Concomitant]
     Active Substance: PREDNISOLONE
     Dosage: UNK
  9. LANSOPRAZOLE-OD TABLETS [Concomitant]
     Dosage: UNK
  10. VALACICLOVIR HYDROCHLORIDE [Suspect]
     Active Substance: VALACYCLOVIR HYDROCHLORIDE
     Indication: HERPES ZOSTER
     Dosage: 500 MG, TID
     Route: 048
     Dates: start: 20200206, end: 20200210
  11. RIVOTRIL [Concomitant]
     Active Substance: CLONAZEPAM
     Dosage: UNK
  12. HEAVY MAGNESIUM OXIDE [Concomitant]
     Active Substance: MAGNESIUM OXIDE
     Dosage: UNK

REACTIONS (19)
  - Neutrophil count increased [Unknown]
  - Oxygen saturation decreased [Unknown]
  - C-reactive protein increased [Unknown]
  - Cardiac failure [Fatal]
  - Urinary tract infection [Unknown]
  - Peripheral coldness [Unknown]
  - Urine output increased [Unknown]
  - Brain natriuretic peptide increased [Unknown]
  - Pallor [Unknown]
  - Off label use [Unknown]
  - Overdose [Unknown]
  - Anuria [Recovered/Resolved]
  - Pneumonia aspiration [Unknown]
  - Blood pressure decreased [Unknown]
  - White blood cell count increased [Unknown]
  - Acute kidney injury [Fatal]
  - Tonic convulsion [Unknown]
  - Altered state of consciousness [Unknown]
  - Hepatic enzyme increased [Unknown]

NARRATIVE: CASE EVENT DATE: 20200206
